FAERS Safety Report 6543882-X (Version None)
Quarter: 2010Q1

REPORT INFORMATION
  Report Type: 
  Country: None (occurrence: None)
  Receive Date: 20100120
  Receipt Date: 20100114
  Transmission Date: 20100710
  Serious: Yes (Other)
  Sender: FDA-Public Use
  Company Number: DE-PFIZER INC-2009203221

PATIENT
  Age: 49 Year
  Sex: Female
  Weight: 48 kg

DRUGS (6)
  1. LYRICA [Suspect]
     Indication: PAIN
     Dosage: 300 MG, 1X/DAY
     Route: 048
     Dates: start: 20040101
  2. LYRICA [Suspect]
     Indication: NEURALGIA
     Dosage: 225MG
     Route: 048
     Dates: start: 20050801
  3. LYRICA [Suspect]
     Indication: FIBROMYALGIA
  4. MYOSON [Concomitant]
     Dosage: 3X2
  5. CLONAZEPAM [Concomitant]
     Dosage: 4 MG, 1X/DAY
  6. ASCOTOP [Concomitant]
     Indication: MIGRAINE
     Dosage: APPROX.10X5MG/MONTH

REACTIONS (6)
  - ASTHENIA [None]
  - CATARACT [None]
  - OEDEMA [None]
  - OEDEMA PERIPHERAL [None]
  - VISION BLURRED [None]
  - VISUAL IMPAIRMENT [None]
